FAERS Safety Report 4735067-4 (Version None)
Quarter: 2005Q3

REPORT INFORMATION
  Report Type: 
  Country: None (occurrence: None)
  Receive Date: 20050804
  Receipt Date: 20050408
  Transmission Date: 20060218
  Serious: Yes (Disabling)
  Sender: FDA-Public Use
  Company Number: US-MERCK-0504USA01268

PATIENT
  Age: 64 Year
  Sex: Male
  Weight: 84 kg

DRUGS (1)
  1. VIOXX [Suspect]
     Indication: BACK PAIN
     Route: 048
     Dates: start: 20001101, end: 20020101

REACTIONS (9)
  - BENIGN PROSTATIC HYPERPLASIA [None]
  - BLOOD CHOLESTEROL INCREASED [None]
  - CEREBROVASCULAR ACCIDENT [None]
  - DEPRESSION [None]
  - HYPERTENSION [None]
  - PAIN [None]
  - ROAD TRAFFIC ACCIDENT [None]
  - SPINAL CORD INJURY [None]
  - TRANSIENT ISCHAEMIC ATTACK [None]
